FAERS Safety Report 4318966-7 (Version None)
Quarter: 2004Q1

REPORT INFORMATION
  Report Type: 
  Country: None (occurrence: None)
  Receive Date: 20040317
  Receipt Date: 20040317
  Transmission Date: 20041129
  Serious: No
  Sender: FDA-Public Use
  Company Number: None

PATIENT
  Age: 65 Year
  Sex: Male

DRUGS (1)
  1. MESALAMINE [Suspect]
     Dosage: 1000 MG BID

REACTIONS (3)
  - ABDOMINAL PAIN [None]
  - BLOOD CREATININE INCREASED [None]
  - NEPHRITIS INTERSTITIAL [None]
